FAERS Safety Report 18594199 (Version 1)
Quarter: 2020Q4

REPORT INFORMATION
  Report Type: Spontaneous
  Country: JP (occurrence: JP)
  Receive Date: 20201209
  Receipt Date: 20201209
  Transmission Date: 20210114
  Serious: Yes (Other)
  Sender: FDA-Public Use
  Company Number: JP-MACLEODS PHARMACEUTICALS US LTD-MAC2020029361

PATIENT

DRUGS (6)
  1. POLYVINYL ALCOHOL/IODINE [Concomitant]
     Dosage: UNK, THE SUTURE WAS REMOVED, AND THE TUBE WAS TEMPORALLY PULLED OUT AND SOAKED IN POLYVINYL
     Route: 065
  2. LEVOFLOXACIN. [Suspect]
     Active Substance: LEVOFLOXACIN
     Indication: CORYNEBACTERIUM BACTERAEMIA
     Dosage: UNK, EYE DROPS
     Route: 047
  3. VORICONAZOLE. [Suspect]
     Active Substance: VORICONAZOLE
     Dosage: 400 MILLIGRAM, QD
     Route: 048
  4. CIPROFLOXACIN. [Suspect]
     Active Substance: CIPROFLOXACIN
     Indication: CORYNEBACTERIUM BACTERAEMIA
     Dosage: 500 MILLIGRAM, QD
     Route: 048
  5. VORICONAZOLE. [Suspect]
     Active Substance: VORICONAZOLE
     Indication: ASPERGILLUS INFECTION
     Dosage: 600 MILLIGRAM, QD
     Route: 048
  6. POLYVINYL ALCOHOL/IODINE [Concomitant]
     Indication: CORYNEBACTERIUM BACTERAEMIA
     Dosage: UNK, EYE DROPS
     Route: 047

REACTIONS (1)
  - Drug eruption [Unknown]
